FAERS Safety Report 7538830-X (Version None)
Quarter: 2011Q2

REPORT INFORMATION
  Report Type: 
  Country: None (occurrence: None)
  Receive Date: 20110610
  Receipt Date: 20110510
  Transmission Date: 20111010
  Serious: Yes (Hospitalization, Other)
  Sender: FDA-Public Use
  Company Number: US-BAYER-201041410NA

PATIENT
  Age: 29 Year
  Sex: Female
  Weight: 58.957 kg

DRUGS (11)
  1. ANTIMIGRAINE PREPARATIONS [Concomitant]
  2. YAZ [Suspect]
     Indication: ACNE
     Dosage: UNK
     Dates: start: 20030101, end: 20080101
  3. YASMIN [Suspect]
     Indication: CONTRACEPTION
  4. MOTRIN [Concomitant]
     Route: 048
  5. ANTIBIOTICS [Concomitant]
  6. ADVIL LIQUI-GELS [Concomitant]
  7. YAZ [Suspect]
     Indication: CONTRACEPTION
  8. DARVOCET [Concomitant]
  9. MOTRIN [Concomitant]
  10. EPHEDRA [Concomitant]
  11. YASMIN [Suspect]
     Indication: ACNE
     Dosage: UNK
     Dates: start: 20030101, end: 20080101

REACTIONS (2)
  - CHOLECYSTITIS CHRONIC [None]
  - GALLBLADDER DISORDER [None]
